FAERS Safety Report 8206530-9 (Version None)
Quarter: 2012Q1

REPORT INFORMATION
  Report Type: 
  Country: None (occurrence: None)
  Receive Date: 20120313
  Receipt Date: 20120227
  Transmission Date: 20120608
  Serious: Yes (Hospitalization)
  Sender: FDA-Public Use
  Company Number: CA-WATSON-2012-04328

PATIENT
  Age: 42 Year
  Sex: Female

DRUGS (3)
  1. CIPROFLOXACIN HCL [Suspect]
     Indication: UROSEPSIS
     Dosage: ADDITIONAL 3 SEPERATE OCCASIONS UNINTENTIONAL RECHALLENGE
     Route: 065
  2. CIPROFLOXACIN HCL [Suspect]
     Dosage: 750 MG, BID
     Route: 048
  3. METHADON HCL TAB [Suspect]

REACTIONS (4)
  - CONFUSIONAL STATE [None]
  - DRUG INTERACTION [None]
  - RESPIRATORY DEPRESSION [None]
  - SEDATION [None]
